FAERS Safety Report 5588610-X (Version None)
Quarter: 2007Q4

REPORT INFORMATION
  Report Type: 
  Country: None (occurrence: None)
  Receive Date: 20071212
  Receipt Date: 20071026
  Transmission Date: 20080405
  Serious: Yes (Other)
  Sender: FDA-Public Use
  Company Number: 2007RL000481

PATIENT
  Age: 36 Year
  Sex: Male
  Weight: 92.5338 kg

DRUGS (2)
  1. LOVAZA [Suspect]
     Indication: BLOOD TRIGLYCERIDES INCREASED
     Dosage: 4 GM;QD;PO
     Route: 048
     Dates: start: 20071008
  2. TRICOR /00499301/ [Concomitant]

REACTIONS (1)
  - CHEST PAIN [None]
